FAERS Safety Report 6994407-6 (Version None)
Quarter: 2010Q3

REPORT INFORMATION
  Report Type: 
  Country: None (occurrence: None)
  Receive Date: 20100917
  Receipt Date: 20100908
  Transmission Date: 20110219
  Serious: Yes (Hospitalization)
  Sender: FDA-Public Use
  Company Number: CA-JNJFOC-20100904131

PATIENT
  Age: 35 Year
  Sex: Male
  Weight: 63.5 kg

DRUGS (8)
  1. EXTRA STRENGTH TYLENOL [Suspect]
     Indication: PYREXIA
     Route: 048
  2. EXTRA STRENGTH TYLENOL [Suspect]
     Indication: HEADACHE
     Route: 048
  3. APO-SULFATRIM [Suspect]
     Indication: HEADACHE
  4. APO-SULFATRIM [Suspect]
     Indication: PYREXIA
  5. SUPRAX [Suspect]
     Indication: HEADACHE
  6. SUPRAX [Suspect]
     Indication: PYREXIA
  7. ADVIL LIQUI-GELS [Concomitant]
     Indication: HEADACHE
  8. ADVIL LIQUI-GELS [Concomitant]
     Indication: PYREXIA

REACTIONS (2)
  - INAPPROPRIATE SCHEDULE OF DRUG ADMINISTRATION [None]
  - LIVER DISORDER [None]
